FAERS Safety Report 18731473 (Version 1)
Quarter: 2021Q1

REPORT INFORMATION
  Report Type: Spontaneous
  Country: US (occurrence: US)
  Receive Date: 20210112
  Receipt Date: 20210112
  Transmission Date: 20210419
  Serious: Yes (Hospitalization)
  Sender: FDA-Public Use
  Company Number: US-ASTRAZENECA-2021A002458

PATIENT
  Age: 64 Year
  Sex: Female
  Weight: 69.9 kg

DRUGS (3)
  1. SYNTHROID [Concomitant]
     Active Substance: LEVOTHYROXINE SODIUM
     Indication: THYROID DISORDER
  2. BYETTA [Suspect]
     Active Substance: EXENATIDE
     Indication: TYPE 2 DIABETES MELLITUS
     Route: 058
     Dates: start: 200901, end: 2019
  3. BYDUREON BCISE [Suspect]
     Active Substance: EXENATIDE
     Indication: TYPE 2 DIABETES MELLITUS
     Route: 058
     Dates: start: 2019

REACTIONS (12)
  - Injection site extravasation [Unknown]
  - Injection site erythema [Recovered/Resolved]
  - Skin atrophy [Not Recovered/Not Resolved]
  - Nail disorder [Not Recovered/Not Resolved]
  - Thyroid disorder [Recovered/Resolved]
  - Body height decreased [Not Recovered/Not Resolved]
  - Musculoskeletal stiffness [Recovered/Resolved]
  - Neck pain [Recovered/Resolved]
  - Incorrect dose administered by device [Not Recovered/Not Resolved]
  - Spinal disorder [Recovered/Resolved]
  - Blood glucose increased [Unknown]
  - Bone disorder [Recovered/Resolved]

NARRATIVE: CASE EVENT DATE: 2012
